FAERS Safety Report 4841173-6 (Version None)
Quarter: 2005Q4

REPORT INFORMATION
  Report Type: 
  Country: None (occurrence: None)
  Receive Date: 20051130
  Receipt Date: 20051021
  Transmission Date: 20060501
  Serious: No
  Sender: FDA-Public Use
  Company Number: US-BRISTOL-MYERS SQUIBB COMPANY-13154059

PATIENT
  Sex: Female

DRUGS (4)
  1. ABILIFY [Suspect]
  2. EFFEXOR [Concomitant]
  3. LAMICTAL [Concomitant]
  4. ZYPREXA [Concomitant]

REACTIONS (1)
  - CONTUSION [None]
